FAERS Safety Report 4546526-1 (Version None)
Quarter: 2005Q1

REPORT INFORMATION
  Report Type: 
  Country: None (occurrence: None)
  Receive Date: 20050106
  Receipt Date: 20041230
  Transmission Date: 20050727
  Serious: Yes (Hospitalization)
  Sender: FDA-Public Use
  Company Number: FR-GLAXOSMITHKLINE-B0363081A

PATIENT
  Age: 66 Year
  Sex: Male
  Weight: 71 kg

DRUGS (6)
  1. AZANTAC [Suspect]
     Route: 042
     Dates: start: 20040427, end: 20040511
  2. POLARAMINE [Suspect]
     Route: 042
     Dates: start: 20040427, end: 20040511
  3. DEXAMETHASONE [Suspect]
     Route: 042
     Dates: start: 20040427, end: 20040511
  4. TAXOL [Suspect]
     Route: 042
     Dates: start: 20040427, end: 20040511
  5. CARBOPLATINE [Suspect]
     Route: 042
     Dates: start: 20040427, end: 20040427
  6. RADIOTHERAPY [Concomitant]
     Dates: start: 20040505, end: 20040630

REACTIONS (2)
  - INTERSTITIAL LUNG DISEASE [None]
  - LUNG DISORDER [None]
